FAERS Safety Report 16031119 (Version 1)
Quarter: 2019Q1

REPORT INFORMATION
  Report Type: Spontaneous
  Country: MY (occurrence: MY)
  Receive Date: 20190304
  Receipt Date: 20190304
  Transmission Date: 20190418
  Serious: Yes (Hospitalization)
  Sender: FDA-Public Use
  Company Number: MY-ANIPHARMA-2019-MY-000002

PATIENT
  Age: 20 Year
  Sex: Male

DRUGS (2)
  1. PHENYTOIN SODIUM (NON-SPECIFIC) [Suspect]
     Active Substance: PHENYTOIN SODIUM
     Indication: PARTIAL SEIZURES
     Dosage: 600 MG DAILY
     Route: 048
  2. SODIUM VALPROATE [Suspect]
     Active Substance: VALPROATE SODIUM
     Indication: PARTIAL SEIZURES
     Dosage: 600/800 MG TWICE DAILY

REACTIONS (6)
  - Blindness [Recovered/Resolved]
  - Drug interaction [Unknown]
  - Nystagmus [Unknown]
  - Delirium [Unknown]
  - Toxicity to various agents [Unknown]
  - Intentional product misuse [Unknown]
